FAERS Safety Report 6716970-2 (Version None)
Quarter: 2010Q2

REPORT INFORMATION
  Report Type: 
  Country: None (occurrence: None)
  Receive Date: 20100510
  Receipt Date: 20100429
  Transmission Date: 20101027
  Serious: Yes (Other)
  Sender: FDA-Public Use
  Company Number: NL-JNJFOC-20100408001

PATIENT
  Sex: Male
  Weight: 75 kg

DRUGS (3)
  1. HALDOL [Suspect]
     Indication: DELUSION
     Route: 065
  2. PAROXETINE HCL [Suspect]
     Indication: MAJOR DEPRESSION
     Route: 065
  3. PROMETHAZINE [Suspect]
     Indication: SOMNOLENCE
     Route: 065

REACTIONS (4)
  - AGGRESSION [None]
  - HAEMORRHOIDS [None]
  - HOMICIDE [None]
  - IMPULSE-CONTROL DISORDER [None]
